FAERS Safety Report 17904433 (Version 1)
Quarter: 2020Q2

REPORT INFORMATION
  Report Type: Other
  Country: IT (occurrence: IT)
  Receive Date: 20200616
  Receipt Date: 20200616
  Transmission Date: 20200714
  Serious: Yes (Other)
  Sender: FDA-Public Use
  Company Number: IT-GE HEALTHCARE LIFE SCIENCES-2020CSU002435

PATIENT

DRUGS (3)
  1. MYOVIEW [Suspect]
     Active Substance: TECHNETIUM TC-99M TETROFOSMIN
     Indication: SCAN MYOCARDIAL PERFUSION
     Dosage: 555 MBQ, SINGLE
     Route: 042
     Dates: start: 20190906, end: 20190906
  2. TECHNETIUM TC 99M [Concomitant]
     Active Substance: TECHNETIUM TC-99M
  3. MYOVIEW [Suspect]
     Active Substance: TECHNETIUM TC-99M TETROFOSMIN
     Indication: PRODUCT USED FOR UNKNOWN INDICATION

REACTIONS (5)
  - Chest pain [Recovered/Resolved]
  - Rash erythematous [Recovered/Resolved]
  - Nausea [Unknown]
  - Depressed level of consciousness [Recovered/Resolved]
  - Erythema [Recovered/Resolved]

NARRATIVE: CASE EVENT DATE: 20190906
